FAERS Safety Report 20741062 (Version 2)
Quarter: 2022Q2

REPORT INFORMATION
  Report Type: Spontaneous
  Country: JP (occurrence: JP)
  Receive Date: 20220422
  Receipt Date: 20220428
  Transmission Date: 20220721
  Serious: Yes (Life-Threatening, Other)
  Sender: FDA-Public Use
  Company Number: JP-TAKEDA-2021TUS075423

PATIENT
  Age: 12 Year
  Sex: Male

DRUGS (5)
  1. INTUNIV [Suspect]
     Active Substance: GUANFACINE HYDROCHLORIDE
     Indication: Attention deficit hyperactivity disorder
     Dosage: 1 MILLIGRAM, QD
     Route: 048
     Dates: start: 20211014, end: 20211015
  2. ABILIFY [Concomitant]
     Active Substance: ARIPIPRAZOLE
     Indication: Agitation
     Dosage: 12 MILLIGRAM, QD
     Route: 048
     Dates: start: 20161219
  3. HERBALS [Concomitant]
     Active Substance: HERBALS
     Indication: Agitation
     Dosage: 2.5 GRAM, QD
     Route: 048
     Dates: start: 20161219
  4. ATOMOXETINE [Concomitant]
     Active Substance: ATOMOXETINE
     Indication: Attention deficit hyperactivity disorder
     Dosage: 100 MILLIGRAM, QD
     Route: 048
     Dates: start: 20170112
  5. RISPERIDONE [Concomitant]
     Active Substance: RISPERIDONE
     Indication: Agitation
     Dosage: 12 MILLIGRAM, QD
     Route: 048
     Dates: start: 20131021

REACTIONS (4)
  - Impulsive behaviour [Recovered/Resolved]
  - Aggression [Recovered/Resolved]
  - Agitation [Recovered/Resolved]
  - Hyperhidrosis [Recovered/Resolved]

NARRATIVE: CASE EVENT DATE: 20211014
